FAERS Safety Report 6697154-3 (Version None)
Quarter: 2010Q2

REPORT INFORMATION
  Report Type: 
  Country: None (occurrence: None)
  Receive Date: 20100426
  Receipt Date: 20100414
  Transmission Date: 20101027
  Serious: Yes (Other)
  Sender: FDA-Public Use
  Company Number: US-PFIZER INC-2010047434

PATIENT
  Sex: Female
  Weight: 92.971 kg

DRUGS (12)
  1. NEURONTIN [Suspect]
     Indication: DIABETIC NEUROPATHY
     Dosage: 200 MG, 1X/DAY
     Route: 048
     Dates: start: 20100414, end: 20100414
  2. VICODIN [Concomitant]
     Indication: HEADACHE
     Dosage: UNK
     Route: 048
  3. VICODIN [Concomitant]
     Indication: MIGRAINE
  4. GLIPIZIDE [Concomitant]
     Indication: DIABETES MELLITUS
     Dosage: UNK
     Route: 048
  5. HYDROCHLOROTHIAZIDE [Concomitant]
     Indication: HYPERTENSION
     Dosage: UNK
  6. ALDOMET [Concomitant]
     Indication: HYPERTENSION
     Dosage: UNK
  7. ATENOLOL [Concomitant]
     Indication: HYPERTENSION
     Dosage: UNK
  8. ATARAX [Concomitant]
     Indication: URTICARIA
     Dosage: UNK
  9. MAGNESIUM [Concomitant]
     Dosage: UNK
  10. FISH OIL [Concomitant]
     Dosage: UNK
  11. VITAMIN D [Concomitant]
     Indication: BONE DISORDER
     Dosage: UNK
  12. CENTRUM [Concomitant]
     Dosage: UNK

REACTIONS (8)
  - AGITATION [None]
  - ANXIETY [None]
  - COORDINATION ABNORMAL [None]
  - DIZZINESS [None]
  - FEAR OF DEATH [None]
  - MIGRAINE [None]
  - NAUSEA [None]
  - SOMNOLENCE [None]
